FAERS Safety Report 11892450 (Version 2)
Quarter: 2016Q1

REPORT INFORMATION
  Report Type: Report from Study
  Country: AR (occurrence: AR)
  Receive Date: 20160106
  Receipt Date: 20160205
  Transmission Date: 20160526
  Serious: Yes (Other)
  Sender: FDA-Public Use
  Company Number: PHHY2016AR000658

PATIENT
  Age: 28 Year
  Sex: Male

DRUGS (1)
  1. TRILEPTAL [Suspect]
     Active Substance: OXCARBAZEPINE
     Indication: EPILEPSY
     Dosage: 3 DF, QD (300 MG)
     Route: 065
     Dates: end: 20160201

REACTIONS (12)
  - Hypokinesia [Recovering/Resolving]
  - Paraesthesia [Not Recovered/Not Resolved]
  - Sensory disturbance [Not Recovered/Not Resolved]
  - Wrong technique in product usage process [Unknown]
  - Accident [Recovering/Resolving]
  - Scar [Recovering/Resolving]
  - Hypoaesthesia [Not Recovered/Not Resolved]
  - Limb injury [Recovering/Resolving]
  - Traumatic haematoma [Recovered/Resolved]
  - Inflammation [Recovering/Resolving]
  - Drug prescribing error [Unknown]
  - Head injury [Recovered/Resolved]

NARRATIVE: CASE EVENT DATE: 20151231
